FAERS Safety Report 10088275 (Version 1)
Quarter: 2014Q2

REPORT INFORMATION
  Report Type: Other
  Country: GB (occurrence: GB)
  Receive Date: 20140421
  Receipt Date: 20140421
  Transmission Date: 20141212
  Serious: Yes (Disabling)
  Sender: FDA-Public Use
  Company Number: GB-GLENMARK GENERICS INC.-2014GMK009258

PATIENT
  Sex: Female

DRUGS (5)
  1. TROSPIUM CHLORIDE [Suspect]
     Indication: STRESS URINARY INCONTINENCE
     Dosage: 20 MG, BID
     Route: 048
     Dates: start: 20130214, end: 20131028
  2. ACICLOVIR [Concomitant]
     Indication: ORAL HERPES
     Dosage: 200 MG, FIVE TIMES A DAY
     Route: 048
     Dates: start: 20100601
  3. ADCAL D3 [Concomitant]
     Indication: OSTEOPENIA
     Dosage: 1 DF, BID
     Route: 048
     Dates: start: 20070718
  4. LACTULOSE [Concomitant]
     Indication: CONSTIPATION
     Dosage: UNK, PRN
     Route: 048
     Dates: start: 20130716
  5. PARACETAMOL [Concomitant]
     Indication: PAIN
     Dosage: UNK, PRN
     Route: 048
     Dates: start: 20070405

REACTIONS (2)
  - Presyncope [Recovered/Resolved]
  - Ventricular tachycardia [Recovered/Resolved]
